FAERS Safety Report 7820543-8 (Version None)
Quarter: 2011Q4

REPORT INFORMATION
  Report Type: 
  Country: None (occurrence: None)
  Receive Date: 20111018
  Receipt Date: 20111011
  Transmission Date: 20120403
  Serious: Yes (Death, Life-Threatening, Other)
  Sender: FDA-Public Use
  Company Number: PHHY2011JP88167

PATIENT
  Sex: Male

DRUGS (34)
  1. SILECE [Concomitant]
     Dosage: 2 MG, DAILY
     Route: 048
     Dates: start: 20110927, end: 20111002
  2. TOFRANIL [Concomitant]
     Dosage: 30 MG, DAILY
     Route: 048
     Dates: start: 20110927
  3. HYDREA [Concomitant]
     Dosage: 1000 MG, DAILY
     Route: 048
     Dates: start: 20110928, end: 20111001
  4. LOXONIN [Concomitant]
     Dosage: UNK UKN, UNK
     Route: 048
     Dates: start: 20110927
  5. ACETAMINOPHEN [Concomitant]
     Dosage: UNK UKN, UNK
     Dates: start: 20110928
  6. LAXOBERON [Concomitant]
     Dosage: UNK UKN, UNK
     Dates: start: 20110929
  7. HARTMAN G-3 [Concomitant]
     Dosage: 500 ML, DAILY
     Dates: start: 20110927, end: 20111003
  8. PACIL [Concomitant]
     Dosage: 1000 MG, DAILY
     Dates: start: 20111002
  9. SEISHOKU [Concomitant]
     Dosage: 20 ML, DAILY
     Dates: start: 20111002
  10. TRANEXAMIC ACID [Concomitant]
     Dosage: 1 G, DAILY
     Dates: start: 20111003
  11. TASIGNA [Suspect]
     Indication: CHRONIC MYELOID LEUKAEMIA
     Dosage: 150 MG, QD
     Route: 048
     Dates: start: 20111003, end: 20111003
  12. TOFRANIL [Concomitant]
     Dosage: 10 MG, DAILY
     Route: 048
  13. MAGNESIUM OXIDE [Concomitant]
     Dosage: 1 G, DAILY
     Route: 048
     Dates: start: 20111001
  14. SODIUM CHLORIDE SOLUTION [Concomitant]
     Dosage: 500 MG, DAILY
     Dates: start: 20110927
  15. SEISHOKU [Concomitant]
     Dosage: 10 ML, DAILY
  16. PREDNISOLONE [Concomitant]
     Dosage: 60 MG, DAILY
     Dates: start: 20111002, end: 20111003
  17. ALLOPURINOL [Concomitant]
     Dosage: 200 MG, DAILY
     Route: 048
     Dates: start: 20110927, end: 20111003
  18. MUCODYNE [Concomitant]
     Dosage: 1000 MG, DAILY
     Route: 048
  19. LENDORMIN [Concomitant]
     Dosage: UNK UKN, UNK
     Route: 048
     Dates: start: 20111001
  20. PURSENNID [Concomitant]
     Dosage: UNK UKN, UNK
     Dates: start: 20110928
  21. ZOLPIDEM [Concomitant]
     Dosage: 5 MG, DAILY
     Route: 048
     Dates: start: 20110927, end: 20111003
  22. DEXALTIN [Concomitant]
     Dosage: UNK UKN, UNK
  23. NOVO HEPARIN [Concomitant]
     Dosage: 10000 IU, DAILY
     Dates: start: 20110927
  24. ADONA [Concomitant]
     Dosage: 100 MG, DAILY
     Dates: start: 20111003
  25. HALCION [Concomitant]
     Dosage: 0.25 MG, DAILY
     Route: 048
     Dates: start: 20110927, end: 20111003
  26. MEILAX [Concomitant]
     Dosage: 1 MG, DAILY
     Route: 048
     Dates: start: 20110927
  27. MUCODYNE [Concomitant]
     Dosage: 1500 MG, DAILY
     Route: 048
     Dates: start: 20111001
  28. FAMOTIDINE [Concomitant]
     Dosage: 20 MG, DAILY
     Dates: start: 20110927, end: 20111003
  29. MEILAX [Concomitant]
     Dosage: 1 MG, DAILY
  30. HYDREA [Concomitant]
     Dosage: 1500 MG, DAILY
     Dates: start: 20111002, end: 20111003
  31. SULFAMETHOXAZOLE [Concomitant]
     Dosage: 2 DF, DAILY
     Route: 048
     Dates: start: 20111002, end: 20111003
  32. TPN ELECTROLYTES IN PLASTIC CONTAINER [Concomitant]
     Dosage: 500 ML, DAILY
     Dates: start: 20110927, end: 20111003
  33. SEISHOKU [Concomitant]
     Dosage: 100 ML, DAILY
     Dates: start: 20111002, end: 20111004
  34. FUNGUARD [Concomitant]
     Dosage: 150 MG, UNK
     Dates: start: 20111002, end: 20111004

REACTIONS (5)
  - HYPERGLYCAEMIA [None]
  - ACIDOSIS [None]
  - NEOPLASM PROGRESSION [None]
  - COMA [None]
  - DEATH [None]
